FAERS Safety Report 8983939 (Version 1)
Quarter: 2012Q4

REPORT INFORMATION
  Report Type: Spontaneous
  Country: US (occurrence: None)
  Receive Date: 20121218
  Receipt Date: 20121218
  Transmission Date: 20130627
  Serious: Yes (Other)
  Sender: FDA-Public Use
  Company Number: None

PATIENT
  Sex: Female
  Weight: 68.04 kg

DRUGS (15)
  1. TYSABRI [Suspect]
     Indication: MS
     Dosage: 300 mg q 28 days IV
     Route: 042
     Dates: start: 20120501, end: 20121023
  2. VIT D [Concomitant]
  3. NEURONTIN [Concomitant]
  4. SYNTHROID [Concomitant]
  5. TRAMADOL [Concomitant]
  6. METOPROLOL [Concomitant]
  7. PERCOCET [Concomitant]
  8. CYMBALTA [Concomitant]
  9. TOPAMAX [Concomitant]
  10. VIT B [Concomitant]
  11. MULTI VIT [Concomitant]
  12. NEW CHAPTER VYFLAAN [Concomitant]
  13. NEW CHAPTER BLOOD PRESS. TAKE CARE [Concomitant]
  14. NEW CHAPTER TRANQUIL NIGHT [Concomitant]
  15. AMBIEN [Concomitant]

REACTIONS (6)
  - Malaise [None]
  - Arthralgia [None]
  - Stomatitis [None]
  - Glossodynia [None]
  - Fatigue [None]
  - Memory impairment [None]
